FAERS Safety Report 19426226 (Version 1)
Quarter: 2021Q2

REPORT INFORMATION
  Report Type: Report from Study
  Country: CA (occurrence: CA)
  Receive Date: 20210616
  Receipt Date: 20210616
  Transmission Date: 20210717
  Serious: Yes (Death, Hospitalization)
  Sender: FDA-Public Use
  Company Number: CA-OTSUKA-2021_004037

PATIENT
  Age: 66 Year
  Sex: Male

DRUGS (1)
  1. ASTX727 [Suspect]
     Active Substance: CEDAZURIDINE\DECITABINE
     Indication: CHRONIC MYELOMONOCYTIC LEUKAEMIA
     Dosage: UNK
     Route: 065
     Dates: start: 20210201

REACTIONS (4)
  - Chills [Unknown]
  - Blood count abnormal [Fatal]
  - Haematemesis [Unknown]
  - Headache [Unknown]

NARRATIVE: CASE EVENT DATE: 20210201
